FAERS Safety Report 10191440 (Version 1)
Quarter: 2014Q2

REPORT INFORMATION
  Report Type: Spontaneous
  Country: US (occurrence: None)
  Receive Date: 20140522
  Receipt Date: 20140522
  Transmission Date: 20141212
  Serious: No
  Sender: FDA-Public Use
  Company Number: None

PATIENT
  Age: 74 Year
  Sex: Male
  Weight: 112 kg

DRUGS (1)
  1. DABIGATRAN [Suspect]
     Indication: ATRIAL FIBRILLATION
     Route: 048

REACTIONS (6)
  - Myocardial haemorrhage [None]
  - Pericardial effusion [None]
  - Cardiac tamponade [None]
  - Cardiac arrest [None]
  - Hypotension [None]
  - Renal failure acute [None]
